FAERS Safety Report 16417236 (Version 2)
Quarter: 2019Q2

REPORT INFORMATION
  Report Type: Spontaneous
  Country: IT (occurrence: IT)
  Receive Date: 20190611
  Receipt Date: 20190617
  Transmission Date: 20190711
  Serious: Yes (Other)
  Sender: FDA-Public Use
  Company Number: IT-PFIZER INC-2019248677

PATIENT
  Age: 77 Year
  Sex: Female

DRUGS (3)
  1. PEPTAZOL [PANTOPRAZOLE] [Suspect]
     Active Substance: PANTOPRAZOLE SODIUM
     Indication: GASTROOESOPHAGEAL REFLUX DISEASE
     Dosage: 20 MILLIGRAM (ONE DOSE FORM), DAILY
     Route: 048
  2. ZIMOX [Suspect]
     Active Substance: AMOXICILLIN
     Indication: HELICOBACTER INFECTION
     Dosage: 7000 MILLIGRAM (14 DOSAGE FORM), DAILY
     Route: 048
  3. MYCOBUTIN [Suspect]
     Active Substance: RIFABUTIN
     Indication: INFECTION
     Dosage: 150 MG (ONE DOSAGE FORM), DAILY
     Route: 048

REACTIONS (1)
  - Urticaria [Recovering/Resolving]

NARRATIVE: CASE EVENT DATE: 20190520
